FAERS Safety Report 10994165 (Version 1)
Quarter: 2015Q2

REPORT INFORMATION
  Report Type: Spontaneous
  Country: US (occurrence: None)
  Receive Date: 20150406
  Receipt Date: 20150406
  Transmission Date: 20150821
  Serious: No
  Sender: FDA-Public Use
  Company Number: None

PATIENT
  Age: 53 Year
  Sex: Male
  Weight: 76.2 kg

DRUGS (1)
  1. REMICADE [Suspect]
     Active Substance: INFLIXIMAB
     Indication: COLITIS ULCERATIVE
     Dosage: 5 MG EVERY 8 WEEKS INTO A VEIN
     Route: 042

REACTIONS (6)
  - Dizziness [None]
  - Feeling hot [None]
  - Infusion related reaction [None]
  - Dyspnoea [None]
  - Flushing [None]
  - Cough [None]

NARRATIVE: CASE EVENT DATE: 20150331
